FAERS Safety Report 25968715 (Version 1)
Quarter: 2025Q4

REPORT INFORMATION
  Report Type: Spontaneous
  Country: EU (occurrence: EU)
  Receive Date: 20251028
  Receipt Date: 20251028
  Transmission Date: 20260118
  Serious: Yes (Other)
  Sender: PFIZER
  Company Number: EU-PFIZER INC-202500211228

PATIENT
  Age: 79 Year

DRUGS (1)
  1. VELSIPITY [Suspect]
     Active Substance: ETRASIMOD ARGININE
     Indication: Colitis ulcerative
     Dosage: UNK
     Dates: start: 2024

REACTIONS (2)
  - Cardiac failure [Unknown]
  - Pulmonary hypertension [Unknown]
